FAERS Safety Report 11956927 (Version 1)
Quarter: 2016Q1

REPORT INFORMATION
  Report Type: Report from Study
  Country: US (occurrence: US)
  Receive Date: 20160126
  Receipt Date: 20160126
  Transmission Date: 20160526
  Serious: No
  Sender: FDA-Public Use
  Company Number: US-ABBVIE-15K-163-1349424-00

PATIENT
  Age: 51 Year
  Sex: Female

DRUGS (4)
  1. SULFONAMIDES [Concomitant]
     Active Substance: UNSPECIFIED INGREDIENT
     Indication: PRODUCT USED FOR UNKNOWN INDICATION
     Dosage: LOW DOSE
  2. FOSAMAX [Concomitant]
     Active Substance: ALENDRONATE SODIUM
     Indication: PRODUCT USED FOR UNKNOWN INDICATION
  3. METHOTREXATE [Concomitant]
     Active Substance: METHOTREXATE
     Indication: PRODUCT USED FOR UNKNOWN INDICATION
  4. HUMIRA [Suspect]
     Active Substance: ADALIMUMAB
     Indication: RHEUMATOID ARTHRITIS
     Route: 065
     Dates: start: 20150211

REACTIONS (12)
  - Headache [Recovered/Resolved]
  - Headache [Recovered/Resolved]
  - Eye pain [Unknown]
  - Diarrhoea [Recovered/Resolved]
  - Sinusitis [Not Recovered/Not Resolved]
  - Drug ineffective [Unknown]
  - Wrong technique in product usage process [Unknown]
  - Dizziness [Not Recovered/Not Resolved]
  - Muscle tightness [Unknown]
  - Anxiety [Recovered/Resolved]
  - Nausea [Unknown]
  - Injection site pain [Unknown]

NARRATIVE: CASE EVENT DATE: 20150211
